FAERS Safety Report 9046644 (Version 1)
Quarter: 2013Q1

REPORT INFORMATION
  Report Type: Spontaneous
  Country: US (occurrence: None)
  Receive Date: 20130125
  Receipt Date: 20130125
  Transmission Date: 20140127
  Serious: Yes (Other)
  Sender: FDA-Public Use
  Company Number: None

PATIENT
  Age: 32 Year
  Sex: Female
  Weight: 70.31 kg

DRUGS (2)
  1. WOMEN^S HAIR REGROWTH TREATMENT 2% MINOXIDIL TOPICAL SOLUTION CVS PHARMACY [Suspect]
     Indication: ALOPECIA
     Dosage: 1 ML  2 TIMES A DAY
     Dates: start: 20130119, end: 20130122
  2. WOMEN^S HAIR REGROWTH TREATMENT 2% MINOXIDIL TOPICAL SOLUTION CVS PHARMACY [Suspect]
     Indication: ALOPECIA
     Dosage: 1 ML  2 TIMES A DAY
     Dates: start: 20130119, end: 20130122

REACTIONS (7)
  - Lymphadenopathy [None]
  - Mass [None]
  - Headache [None]
  - Dizziness [None]
  - Oropharyngeal pain [None]
  - Neck pain [None]
  - Pain [None]
